FAERS Safety Report 8228588-3 (Version None)
Quarter: 2012Q1

REPORT INFORMATION
  Report Type: 
  Country: None (occurrence: None)
  Receive Date: 20120322
  Receipt Date: 20110505
  Transmission Date: 20120608
  Serious: Yes (Hospitalization)
  Sender: FDA-Public Use
  Company Number: US-BRISTOL-MYERS SQUIBB COMPANY-15636269

PATIENT
  Age: 60 Year
  Sex: Male

DRUGS (21)
  1. VITAMIN B6 [Concomitant]
     Route: 048
  2. METHOCARBAMOL [Concomitant]
     Dosage: 1 DF: 750 NIT NOS
  3. FOLIC ACID [Concomitant]
     Route: 048
  4. ERBITUX [Suspect]
     Indication: LUNG NEOPLASM MALIGNANT
     Dosage: LOADING DOSE  4 VIALS OF 200 MG IV OVER 2 HRS WEEKLY DOSE:500MG:31MAR-7APR11
     Route: 042
     Dates: start: 20110324
  5. MAGNESIUM SULFATE [Suspect]
     Dosage: 1 DF=1 AMP
     Route: 042
     Dates: start: 20110324, end: 20110324
  6. ACETAMINOPHEN [Concomitant]
     Route: 048
     Dates: start: 20110324
  7. ASPIRIN [Concomitant]
  8. VITAMIN B-12 [Concomitant]
     Route: 048
  9. ROBAXIN [Concomitant]
     Route: 048
  10. LORCET-HD [Concomitant]
     Indication: PAIN
  11. FOLTX [Concomitant]
     Dosage: 1 DF: 1 TAB
  12. PLAVIX [Concomitant]
     Route: 048
  13. PROTONIX [Concomitant]
     Route: 048
  14. KEPPRA [Concomitant]
     Dosage: INCREASED TO 700MG
     Route: 048
  15. DIPHENHYDRAMINE HCL [Suspect]
     Route: 042
     Dates: start: 20110324, end: 20110324
  16. LEVEMIR [Concomitant]
     Dosage: 1 DF=24UNITS EVERY NYT
     Route: 058
  17. NEXIUM [Concomitant]
     Dosage: 1 DF: 40 UNIT NOS
  18. LIPITOR [Concomitant]
     Dosage: EVERY NYT
     Route: 048
  19. CORTEF [Concomitant]
     Route: 048
  20. HYDROCORTISONE [Concomitant]
     Dosage: 1 DF: 20 UNIT NOS
  21. NOVOLOG [Concomitant]
     Route: 058

REACTIONS (1)
  - MENINGITIS ASEPTIC [None]
